FAERS Safety Report 5601100-0 (Version None)
Quarter: 2008Q1

REPORT INFORMATION
  Report Type: 
  Country: None (occurrence: None)
  Receive Date: 20080108
  Receipt Date: 20071105
  Transmission Date: 20080703
  Serious: Yes (Hospitalization)
  Sender: FDA-Public Use
  Company Number: PERC20070079

PATIENT
  Age: 86 Year
  Sex: Male

DRUGS (5)
  1. PERCOCET [Suspect]
     Indication: CANCER PAIN
     Dosage: 1 TAB ONCE, ORAL
     Route: 048
     Dates: start: 20071020, end: 20071020
  2. NANDROLONE DECANOATE [Suspect]
     Indication: ANAEMIA
     Dosage: ONCE, INJECTION
     Route: 042
     Dates: start: 20071019, end: 20071019
  3. ACETAMINOPHEN AND CODEINE PHOSPHATE [Suspect]
     Indication: CANCER PAIN
     Dosage: 2-4 TABS, ORAL
     Route: 048
     Dates: start: 20071020, end: 20071022
  4. ADVIL [Suspect]
     Indication: CANCER PAIN
     Dosage: 4-6 TABS, ORAL
     Route: 048
     Dates: start: 20071020, end: 20071022
  5. ASCORBIC ACID [Concomitant]

REACTIONS (2)
  - CONFUSIONAL STATE [None]
  - HYPONATRAEMIA [None]
